FAERS Safety Report 24310647 (Version 1)
Quarter: 2024Q3

REPORT INFORMATION
  Report Type: Spontaneous
  Country: US (occurrence: US)
  Receive Date: 20240912
  Receipt Date: 20240912
  Transmission Date: 20241017
  Serious: No
  Sender: MERCK
  Company Number: US-009507513-2409USA000587

PATIENT
  Age: 39 Year
  Sex: Female
  Weight: 70.3 kg

DRUGS (28)
  1. WINREVAIR [Suspect]
     Active Substance: SOTATERCEPT-CSRK
     Indication: Product used for unknown indication
     Dosage: UNK
     Dates: start: 202408
  2. REMODULIN [Suspect]
     Active Substance: TREPROSTINIL
     Indication: Pulmonary arterial hypertension
     Dosage: UNK
     Route: 058
     Dates: start: 20240229
  3. REMODULIN [Suspect]
     Active Substance: TREPROSTINIL
     Dosage: 0.054 MILLIGRAM/KILOGRAM, CONTINUOUS (PHARMACY PRE-FILLED WITH 2.4 ML PER CASSETTE. RATE OF 24 MCL P
     Route: 058
     Dates: start: 2024
  4. AMLODIPINE BESYLATE [Concomitant]
     Active Substance: AMLODIPINE BESYLATE
  5. POTASSIUM CHLORIDE [Concomitant]
     Active Substance: POTASSIUM CHLORIDE
  6. VITAMIN D2 [Concomitant]
     Active Substance: ERGOCALCIFEROL
  7. LASIX [Concomitant]
     Active Substance: FUROSEMIDE
  8. OPSUMIT [Concomitant]
     Active Substance: MACITENTAN
  9. KETAMINE HYDROCHLORIDE [Concomitant]
     Active Substance: KETAMINE HYDROCHLORIDE
  10. LECITHIN [GLYCINE MAX EXTRACT] [Concomitant]
  11. TADALAFIL [Concomitant]
     Active Substance: TADALAFIL
  12. AYR [GUAIFENESIN;THEOPHYLLINE] [Concomitant]
  13. ASPIRIN [Concomitant]
     Active Substance: ASPIRIN
  14. TECFIDERA [Concomitant]
     Active Substance: DIMETHYL FUMARATE
  15. CLONIDINE HYDROCHLORIDE [Concomitant]
     Active Substance: CLONIDINE HYDROCHLORIDE
  16. KETOPROFEN [Concomitant]
     Active Substance: KETOPROFEN
  17. OXYGEN [Concomitant]
     Active Substance: OXYGEN
  18. BENADRYL ALLERGY [Concomitant]
     Active Substance: DIPHENHYDRAMINE HYDROCHLORIDE
  19. LIDOCAINA HCL [Concomitant]
  20. ONDANSETRON [Concomitant]
     Active Substance: ONDANSETRON
  21. AMITRIPTYLINE HYDROCHLORIDE [Concomitant]
     Active Substance: AMITRIPTYLINE HYDROCHLORIDE
  22. GABAPENTIN [Concomitant]
     Active Substance: GABAPENTIN
  23. POLOXAMER [Concomitant]
     Active Substance: POLOXAMER
  24. LORATADINE [Concomitant]
     Active Substance: LORATADINE
  25. MUCINEX [Concomitant]
     Active Substance: GUAIFENESIN
  26. CHANTIX [Concomitant]
     Active Substance: VARENICLINE TARTRATE
  27. LIPITOR [Concomitant]
     Active Substance: ATORVASTATIN CALCIUM
  28. OMEPRAZOLE [Concomitant]
     Active Substance: OMEPRAZOLE

REACTIONS (1)
  - Nausea [Unknown]

NARRATIVE: CASE EVENT DATE: 20240801
